FAERS Safety Report 5468942-6 (Version None)
Quarter: 2007Q3

REPORT INFORMATION
  Report Type: 
  Country: None (occurrence: None)
  Receive Date: 20070926
  Receipt Date: 20070920
  Transmission Date: 20080115
  Serious: Yes (Hospitalization, Other)
  Sender: FDA-Public Use
  Company Number: DE-ABBOTT-07P-062-0417917-00

PATIENT
  Sex: Female
  Weight: 72 kg

DRUGS (13)
  1. HUMIRA [Suspect]
     Indication: RHEUMATOID ARTHRITIS
     Route: 058
     Dates: start: 20051101, end: 20070401
  2. HUMIRA [Suspect]
     Dates: start: 20040501, end: 20050901
  3. LEFLUNOMIDE [Concomitant]
     Indication: RHEUMATOID ARTHRITIS
     Dates: start: 20060501, end: 20070401
  4. PREDNISOLONE [Concomitant]
     Indication: RHEUMATOID ARTHRITIS
     Dates: start: 20070501
  5. LEVOTHYROXINE SODIUM [Concomitant]
     Indication: DRUG USE FOR UNKNOWN INDICATION
  6. ESOMEPRAZOLE MAGNESIUM [Concomitant]
     Indication: DRUG USE FOR UNKNOWN INDICATION
  7. CANDESARTAN CILEXETIL [Concomitant]
     Indication: DRUG USE FOR UNKNOWN INDICATION
  8. POTASSIUM BICARBONATE [Concomitant]
     Indication: DRUG USE FOR UNKNOWN INDICATION
  9. FELODIPINE [Concomitant]
     Indication: DRUG USE FOR UNKNOWN INDICATION
  10. FENISTIL DRAGEE [Concomitant]
     Indication: DRUG USE FOR UNKNOWN INDICATION
  11. NITROFURANTOIN [Concomitant]
     Indication: DRUG USE FOR UNKNOWN INDICATION
  12. FRAGMIN P FORTE [Concomitant]
     Indication: DRUG USE FOR UNKNOWN INDICATION
     Route: 058
  13. NEBIVOLOL [Concomitant]
     Indication: DRUG USE FOR UNKNOWN INDICATION

REACTIONS (9)
  - ABDOMINAL PAIN UPPER [None]
  - DERMATITIS ALLERGIC [None]
  - ESCHERICHIA INFECTION [None]
  - GENERAL PHYSICAL HEALTH DETERIORATION [None]
  - HEPATIC STEATOSIS [None]
  - PNEUMOCOCCAL SEPSIS [None]
  - PNEUMONIA STREPTOCOCCAL [None]
  - SEPTIC SHOCK [None]
  - SUPRAVENTRICULAR TACHYCARDIA [None]
